FAERS Safety Report 19075451 (Version 3)
Quarter: 2021Q2

REPORT INFORMATION
  Report Type: Spontaneous
  Country: PL (occurrence: PL)
  Receive Date: 20210331
  Receipt Date: 20210427
  Transmission Date: 20210717
  Serious: Yes (Hospitalization, Other)
  Sender: FDA-Public Use
  Company Number: PL-AUROBINDO-AUR-APL-2021-012894

PATIENT
  Age: 46 Year
  Sex: Male

DRUGS (11)
  1. IVABRADINE FILM COATED TABLETS [Suspect]
     Active Substance: IVABRADINE
     Dosage: 5 DOSAGE FORM, TWO TIMES A DAY
     Route: 065
  2. RAMIPRIL TABLET [Suspect]
     Active Substance: RAMIPRIL
     Indication: CARDIAC FAILURE CHRONIC
     Dosage: 1 DOSAGE FORM, ONCE A DAY
     Route: 048
  3. ROSUVASTATIN FILM COATED TABLETS [Suspect]
     Active Substance: ROSUVASTATIN
     Indication: CARDIAC FAILURE CHRONIC
     Dosage: 1 DOSAGE FORM, ONCE A DAY
     Route: 065
  4. IVABRADINE FILM COATED TABLETS [Suspect]
     Active Substance: IVABRADINE
     Indication: CARDIAC FAILURE CHRONIC
     Dosage: 1 DOSAGE FORM, ONCE A DAY (0.5 DF, BID)
     Route: 065
  5. ACETYLSALICYLIC ACID [Suspect]
     Active Substance: ASPIRIN
     Indication: CARDIAC FAILURE CHRONIC
     Dosage: 1 DOSAGE FORM, ONCE A DAY
     Route: 065
  6. TORASEMIDE [Suspect]
     Active Substance: TORSEMIDE
     Indication: CARDIAC FAILURE CHRONIC
     Dosage: 20 MILLIGRAM, ONCE A DAY
     Route: 065
  7. EPLERENONE. [Suspect]
     Active Substance: EPLERENONE
     Indication: CARDIAC FAILURE CHRONIC
     Dosage: 1 DOSAGE FORM, ONCE A DAY  (AT NOON)
     Route: 065
  8. ATORVASTATIN FILM COATED TABLET [Suspect]
     Active Substance: ATORVASTATIN
     Indication: CARDIAC FAILURE CHRONIC
     Dosage: 1 DOSAGE FORM, ONCE A DAY
     Route: 065
  9. CARVEDILOL FILM?COATED TABLETS [Suspect]
     Active Substance: CARVEDILOL
     Indication: CARDIAC FAILURE CHRONIC
     Dosage: 1 DOSAGE FORM, TWO TIMES A DAY
     Route: 065
  10. ENTRESTO [Suspect]
     Active Substance: SACUBITRIL\VALSARTAN
     Indication: CARDIAC FAILURE CHRONIC
     Dosage: 2 DOSAGE FORM (OF 49/51MG)
     Route: 065
  11. ENTRESTO [Suspect]
     Active Substance: SACUBITRIL\VALSARTAN
     Dosage: 2 DOSAGE FORM (OF 24/26MG)
     Route: 065
     Dates: start: 20191128

REACTIONS (7)
  - Computerised tomogram coronary artery abnormal [Unknown]
  - Cardiac failure [Recovered/Resolved]
  - Hypotension [Unknown]
  - Electrocardiogram abnormal [Unknown]
  - Feeling abnormal [Unknown]
  - Bradycardia [Unknown]
  - Electrocardiogram ambulatory abnormal [Unknown]

NARRATIVE: CASE EVENT DATE: 20190522
